FAERS Safety Report 6796234-1 (Version None)
Quarter: 2010Q2

REPORT INFORMATION
  Report Type: 
  Country: None (occurrence: None)
  Receive Date: 20100624
  Receipt Date: 20100624
  Transmission Date: 20101027
  Serious: Yes (Life-Threatening, Hospitalization)
  Sender: FDA-Public Use
  Company Number: None

PATIENT
  Sex: Male
  Weight: 43 kg

DRUGS (11)
  1. ZOSYN [Suspect]
     Indication: PNEUMONIA
     Dosage: 3.375 GM Q6H IV
     Route: 042
     Dates: start: 20100601, end: 20100608
  2. BACLOFEN [Concomitant]
  3. HYDROCORTISONE [Concomitant]
  4. LEVETIRACETAM [Concomitant]
  5. PHENOBARBITAL ELIXIR [Concomitant]
  6. LEVOTHYROXINE SODIUM [Concomitant]
  7. GLYCOPYRROLATE [Concomitant]
  8. MONTELUKAST [Concomitant]
  9. THEOPHYLLINE ELIXIR LIQUID [Concomitant]
  10. FERROUS SULFATE [Concomitant]
  11. CIPROFLOXACIN [Concomitant]

REACTIONS (1)
  - HAEMOLYTIC ANAEMIA [None]
